FAERS Safety Report 17658926 (Version 1)
Quarter: 2020Q2

REPORT INFORMATION
  Report Type: Report from Study
  Country: None (occurrence: BR)
  Receive Date: 20200413
  Receipt Date: 20200413
  Transmission Date: 20200713
  Serious: Yes (Other)
  Sender: FDA-Public Use
  Company Number: BR-ABBVIE-20K-020-3358156-00

PATIENT
  Sex: Male
  Weight: 74 kg

DRUGS (7)
  1. HUMIRA [Suspect]
     Active Substance: ADALIMUMAB
     Indication: PSORIATIC ARTHROPATHY
     Route: 058
     Dates: start: 20161104, end: 202002
  2. TECNOMET [Concomitant]
     Active Substance: METHOTREXATE
     Indication: PSORIASIS
     Dosage: EVERY THURSDAY
  3. GLICLAZIDE [Concomitant]
     Active Substance: GLICLAZIDE
     Indication: DIABETES MELLITUS
     Dosage: 1 IN BREAKFAST; 1 AT LUNCH; 1 AT DINNER
  4. FOLIC ACID. [Concomitant]
     Active Substance: FOLIC ACID
     Indication: PSORIASIS
     Dosage: EVERY FRIDAY
  5. NESINA MET [Concomitant]
     Active Substance: ALOGLIPTIN BENZOATE\METFORMIN HYDROCHLORIDE
     Indication: DIABETES MELLITUS
     Dosage: 1 TABLET IN MORNING; 1 TABLET AT NIGHT
  6. AMLODIPINE BESYLATE. [Concomitant]
     Active Substance: AMLODIPINE BESYLATE
     Indication: HYPERTENSION
  7. LOSARTAN POTASSIUM. [Concomitant]
     Active Substance: LOSARTAN POTASSIUM
     Indication: HYPERTENSION
     Dosage: 1 TABLET IN MORNING; 1 TABLET AT NIGHT

REACTIONS (7)
  - Tooth disorder [Recovered/Resolved]
  - Oral pain [Not Recovered/Not Resolved]
  - Psoriasis [Unknown]
  - Loose tooth [Recovered/Resolved]
  - Oral discomfort [Not Recovered/Not Resolved]
  - Tooth infection [Unknown]
  - Post procedural swelling [Recovered/Resolved]
